FAERS Safety Report 7206471-X (Version None)
Quarter: 2011Q1

REPORT INFORMATION
  Report Type: 
  Country: None (occurrence: None)
  Receive Date: 20110103
  Receipt Date: 20101223
  Transmission Date: 20110831
  Serious: Yes (Hospitalization)
  Sender: FDA-Public Use
  Company Number: DE-PFIZER INC-2010157734

PATIENT
  Age: 78 Year
  Sex: Male
  Weight: 90 kg

DRUGS (6)
  1. VERAPAMIL [Concomitant]
     Indication: HYPERTENSION
     Dosage: 120 MG, 2X/DAY
     Route: 048
  2. LISINOPRIL [Concomitant]
     Indication: HYPERTENSION
     Dosage: 5 MG, 1X/DAY
     Route: 048
  3. DURAGESIC-100 [Suspect]
     Indication: PAIN
     Dosage: 16.8 MG, (100 UG/H ACTIVE SUBSTANCE RELEASE) EVERY 3 DAYS
     Route: 003
     Dates: end: 20080818
  4. MOVICOL [Concomitant]
     Indication: CONSTIPATION
     Dosage: 1 DF, 3X/DAY
     Route: 048
     Dates: end: 20080815
  5. RANITIC [Concomitant]
     Indication: REFLUX OESOPHAGITIS
     Dosage: 150 MG, 1X/DAY
     Route: 048
  6. LYRICA [Suspect]
     Indication: PAIN
     Dosage: 75 MG, (2X75 MG IN THE MORNING/1X75 MG IN THE EVENING)
     Route: 048

REACTIONS (3)
  - DIVERTICULUM [None]
  - CONSTIPATION [None]
  - DIVERTICULITIS [None]
